FAERS Safety Report 4375298-9 (Version None)
Quarter: 2004Q2

REPORT INFORMATION
  Report Type: 
  Country: None (occurrence: None)
  Receive Date: 20040607
  Receipt Date: 20030822
  Transmission Date: 20050107
  Serious: No
  Sender: FDA-Public Use
  Company Number: 345210

PATIENT
  Age: 18 Year
  Sex: Male
  Weight: 77.1 kg

DRUGS (1)
  1. ACCUTANE [Suspect]
     Indication: ACNE CYSTIC
     Dosage: 40 MG 2 PER DAY ORAL
     Route: 048
     Dates: start: 20030327, end: 20030715

REACTIONS (7)
  - ADVERSE EVENT [None]
  - HERPES OPHTHALMIC [None]
  - HERPES VIRUS INFECTION [None]
  - IMPETIGO [None]
  - PHARYNGITIS [None]
  - STAPHYLOCOCCAL IMPETIGO [None]
  - STAPHYLOCOCCAL PHARYNGITIS [None]
